FAERS Safety Report 24933756 (Version 1)
Quarter: 2025Q1

REPORT INFORMATION
  Report Type: Report from Study
  Country: CA (occurrence: CA)
  Receive Date: 20250206
  Receipt Date: 20250206
  Transmission Date: 20250409
  Serious: Yes (Other)
  Sender: EXELIXIS
  Company Number: CA-IPSEN Group, Research and Development-2024-02696

PATIENT
  Sex: Male

DRUGS (9)
  1. CABOMETYX [Suspect]
     Active Substance: CABOZANTINIB S-MALATE
     Indication: Renal cell carcinoma
     Dates: start: 20231116
  2. AXITINIB/PEMBRO [Concomitant]
  3. LOPERAMINE [Concomitant]
  4. ADDALAT 60 mg [Concomitant]
  5. ROSUVASTATIN [Concomitant]
     Active Substance: ROSUVASTATIN
  6. M-CAL D 500MG [Concomitant]
  7. RHINARIS [Concomitant]
  8. UREMOL [Concomitant]
     Active Substance: UREA
  9. MOMETASONE [Concomitant]
     Active Substance: MOMETASONE

REACTIONS (1)
  - Malignant neoplasm progression [Unknown]
